FAERS Safety Report 21842789 (Version 1)
Quarter: 2023Q1

REPORT INFORMATION
  Report Type: Spontaneous
  Country: US (occurrence: US)
  Receive Date: 20230110
  Receipt Date: 20230110
  Transmission Date: 20230418
  Serious: No
  Sender: FDA-Public Use
  Company Number: US-BRISTOL-MYERS SQUIBB COMPANY-2023-003396

PATIENT
  Age: 17 Year
  Sex: Female

DRUGS (1)
  1. ORENCIA [Suspect]
     Active Substance: ABATACEPT
     Indication: Juvenile idiopathic arthritis
     Dosage: DOSE: 87.5MG/0.7?STRENGTH: 87.5MG/0.7
     Route: 058
     Dates: start: 202108

REACTIONS (1)
  - Adverse event [Unknown]
